FAERS Safety Report 10235284 (Version 1)
Quarter: 2014Q2

REPORT INFORMATION
  Report Type: Spontaneous
  Country: US (occurrence: None)
  Receive Date: 20140612
  Receipt Date: 20140612
  Transmission Date: 20141212
  Serious: Yes (Hospitalization, Other)
  Sender: FDA-Public Use
  Company Number: None

PATIENT
  Age: 43 Year
  Sex: Female
  Weight: 63.5 kg

DRUGS (7)
  1. SERTRALINE HCL [Suspect]
     Indication: WEIGHT ABNORMAL
     Dosage: ONE PILL
     Route: 048
  2. ADIPEX [Concomitant]
  3. TYLENOL [Concomitant]
  4. PERICOLOCACE [Concomitant]
  5. HYDROCHLOROTHIAZIDE [Concomitant]
  6. NADSERTRALINEHCL [Concomitant]
  7. MIDOL ORAL JEL [Concomitant]

REACTIONS (6)
  - Palpitations [None]
  - Hyperhidrosis [None]
  - Abdominal pain upper [None]
  - Arrhythmia [None]
  - Palpitations [None]
  - Product substitution issue [None]
